FAERS Safety Report 9500330 (Version 1)
Quarter: 2013Q1

REPORT INFORMATION
  Report Type: Spontaneous
  Country: US (occurrence: None)
  Receive Date: 20130124
  Receipt Date: 20130124
  Transmission Date: 20140127
  Serious: Yes (Other)
  Sender: FDA-Public Use
  Company Number: 2012PROUSA01959

PATIENT
  Age: 66 Year
  Sex: Male

DRUGS (1)
  1. PROVENGE (SIPULEUCEL-T) SUSPENSION, 250ML [Suspect]
     Indication: PROSTATE CANCER METASTATIC
     Route: 042
     Dates: start: 20120416, end: 20120416

REACTIONS (5)
  - Disease progression [None]
  - Malaise [None]
  - Chills [None]
  - Pyrexia [None]
  - Hypertension [None]
